FAERS Safety Report 5262019-0 (Version None)
Quarter: 2007Q1

REPORT INFORMATION
  Report Type: 
  Country: None (occurrence: None)
  Receive Date: 20061208
  Receipt Date: 20061113
  Transmission Date: 20070707
  Serious: Yes (Other)
  Sender: FDA-Public Use
  Company Number: USA-2006-0024799

PATIENT
  Age: 52 Year
  Sex: Female
  Weight: 86.2 kg

DRUGS (4)
  1. OXYCONTIN [Suspect]
     Indication: PAIN MANAGEMENT
     Dosage: 10 MG, TID, ORAL
     Route: 048
     Dates: start: 20051003, end: 20060802
  2. FOLIC ACID [Concomitant]
  3. HYDROCHLOROTHIAZIDE [Concomitant]
  4. YASMIN [Concomitant]

REACTIONS (2)
  - DRUG ABUSER [None]
  - INAPPROPRIATE SCHEDULE OF DRUG ADMINISTRATION [None]
